FAERS Safety Report 12379497 (Version 1)
Quarter: 2016Q2

REPORT INFORMATION
  Report Type: Spontaneous
  Country: FR (occurrence: FR)
  Receive Date: 20160517
  Receipt Date: 20160517
  Transmission Date: 20160815
  Serious: Yes (Hospitalization)
  Sender: FDA-Public Use
  Company Number: FR-009507513-1605FRA007171

PATIENT
  Age: 36 Year
  Sex: Female

DRUGS (3)
  1. PUREGON [Suspect]
     Active Substance: FOLLITROPIN
     Dosage: 110 IU FOR 8 DAYS, THEN 125 IU
     Route: 058
     Dates: start: 20160203, end: 20160217
  2. ORGALUTRAN [Suspect]
     Active Substance: GANIRELIX ACETATE
     Dosage: UNK
     Route: 058
     Dates: start: 20160213, end: 20160217
  3. OVITRELLE [Suspect]
     Active Substance: CHORIOGONADOTROPIN ALFA
     Dosage: 1 DF, ONCE
     Route: 058
     Dates: start: 20160218, end: 20160218

REACTIONS (2)
  - Ovarian hyperstimulation syndrome [Recovered/Resolved]
  - Ascites [Recovered/Resolved]

NARRATIVE: CASE EVENT DATE: 20160302
